FAERS Safety Report 8174657-6 (Version None)
Quarter: 2012Q1

REPORT INFORMATION
  Report Type: 
  Country: None (occurrence: None)
  Receive Date: 20120227
  Receipt Date: 20120215
  Transmission Date: 20120608
  Serious: Yes (Other)
  Sender: FDA-Public Use
  Company Number: 2012SP008584

PATIENT
  Age: 48 Year
  Sex: Male

DRUGS (3)
  1. BOCEPREVIR (SCH-503034) [Suspect]
     Indication: HEPATITIS C
     Dosage: 800 MG;TID;PO
     Route: 048
     Dates: start: 20110722, end: 20111129
  2. REBETOL [Concomitant]
     Indication: HEPATITIS C
     Dosage: 600 MG;BID;PO
     Route: 048
     Dates: start: 20110520, end: 20111129
  3. VIRAFERONPEG [Suspect]
     Indication: HEPATITIS C
     Dosage: 120 MCG;QW;SC
     Route: 058
     Dates: start: 20110520, end: 20111129

REACTIONS (2)
  - PHARYNGITIS [None]
  - ASTHENIA [None]
